FAERS Safety Report 22774567 (Version 3)
Quarter: 2024Q4

REPORT INFORMATION
  Report Type: Spontaneous
  Country: BR (occurrence: BR)
  Receive Date: 20230802
  Receipt Date: 20241107
  Transmission Date: 20250115
  Serious: Yes (Death, Other)
  Sender: NOVARTIS
  Company Number: BR-002147023-NVSC2023BR156914

PATIENT
  Age: 4 Year
  Sex: Male
  Weight: 55 kg

DRUGS (16)
  1. VOTRIENT [Suspect]
     Active Substance: PAZOPANIB HYDROCHLORIDE
     Indication: Nephroblastoma
     Dosage: 600 MG, QD, (600 MG PER DAY DURING 15 DAYS WITH A PAUSE OF 21 DAYS), (1 BOX EQUAL TO 2 TREATMENT CYC
     Route: 065
  2. VOTRIENT [Suspect]
     Active Substance: PAZOPANIB HYDROCHLORIDE
     Dosage: 600 MG, QD (600 MG PER DAY DURING 15 DAYS WITH A PAUSE OF 21 DAYS), (1 BOX EQUAL TO 2 TREATMENT CYCL
     Route: 065
  3. VOTRIENT [Suspect]
     Active Substance: PAZOPANIB HYDROCHLORIDE
     Dosage: 400 MG (600 MG PER DAY DURING 15 DAYS WITH 21 DAYS OF PAUSE (HE USES ONE 400 MG TABLET + ONE 200 MG
     Route: 048
     Dates: start: 202302
  4. VOTRIENT [Suspect]
     Active Substance: PAZOPANIB HYDROCHLORIDE
     Dosage: 200 MG (600 MG PER DAY DURING 15 DAYS WITH 21 DAYS OF PAUSE (HE USES ONE 400 MG TABLET + ONE 200 MG
     Route: 048
     Dates: start: 202303
  5. VOTRIENT [Suspect]
     Active Substance: PAZOPANIB HYDROCHLORIDE
     Dosage: 1 DOSAGE FORM, QD, 200 MG, 30 TABLETS
     Route: 065
     Dates: start: 202305
  6. VOTRIENT [Suspect]
     Active Substance: PAZOPANIB HYDROCHLORIDE
     Dosage: 1 DOSAGE FORM, QD, 200 MG, 30 TABLETS
     Route: 065
  7. VOTRIENT [Suspect]
     Active Substance: PAZOPANIB HYDROCHLORIDE
     Dosage: 1 DOSAGE FORM, QD, 400 MG, 30 TABLETS
     Route: 065
     Dates: start: 202305
  8. BACLOFEN [Suspect]
     Active Substance: BACLOFEN
     Indication: Musculoskeletal disorder
     Dosage: 1 DOSAGE FORM, QD
     Route: 048
     Dates: start: 202304
  9. PANTOPRAZOLE [Suspect]
     Active Substance: PANTOPRAZOLE
     Indication: Abdominal discomfort
     Dosage: UNK (3 MONTHS AGO)
     Route: 065
  10. PREGABALIN [Concomitant]
     Active Substance: PREGABALIN
     Indication: Pain
     Dosage: 2 DOSAGE FORM, BID
     Route: 048
     Dates: start: 202304
  11. BACTRIM [Concomitant]
     Active Substance: SULFAMETHOXAZOLE\TRIMETHOPRIM
     Indication: Prophylaxis
     Dosage: 1 DOSAGE FORM, QD (9 YEARS AGO)
     Route: 065
  12. BACTRIM [Concomitant]
     Active Substance: SULFAMETHOXAZOLE\TRIMETHOPRIM
     Dosage: 1 DOSAGE FORM, QD (9 YEARS AGO)
     Route: 048
  13. CARBOPLATIN [Concomitant]
     Active Substance: CARBOPLATIN
     Indication: Chemotherapy
     Dosage: UNK
     Route: 042
     Dates: start: 202304
  14. CARBOPLATIN [Concomitant]
     Active Substance: CARBOPLATIN
     Indication: Neoplasm
  15. ETOPOSIDE [Concomitant]
     Active Substance: ETOPOSIDE
     Indication: Chemotherapy
     Dosage: UNK
     Route: 042
     Dates: start: 202304
  16. ETOPOSIDE [Concomitant]
     Active Substance: ETOPOSIDE
     Indication: Neoplasm

REACTIONS (4)
  - Nephroblastoma [Fatal]
  - Pain [Not Recovered/Not Resolved]
  - Asthenia [Not Recovered/Not Resolved]
  - Inappropriate schedule of product administration [Not Recovered/Not Resolved]

NARRATIVE: CASE EVENT DATE: 20140101
